FAERS Safety Report 11633810 (Version 3)
Quarter: 2015Q4

REPORT INFORMATION
  Report Type: Spontaneous
  Country: MX (occurrence: MX)
  Receive Date: 20151015
  Receipt Date: 20151130
  Transmission Date: 20160304
  Serious: Yes (Other)
  Sender: FDA-Public Use
  Company Number: MX-AMGEN-MEXSP2015105868

PATIENT
  Sex: Male
  Weight: 72 kg

DRUGS (6)
  1. VITAMINS                           /00067501/ [Concomitant]
     Active Substance: VITAMINS
  2. ARANESP [Suspect]
     Active Substance: DARBEPOETIN ALFA
     Indication: NEPHROGENIC ANAEMIA
  3. CALCIUM CARBONATE. [Concomitant]
     Active Substance: CALCIUM CARBONATE
     Dosage: 600 MG, TID
     Route: 048
     Dates: start: 2014
  4. NIFEDIPINE. [Concomitant]
     Active Substance: NIFEDIPINE
     Indication: BLOOD PRESSURE ABNORMAL
     Dosage: 30 MG, BID
     Route: 048
     Dates: start: 2014
  5. ARANESP [Suspect]
     Active Substance: DARBEPOETIN ALFA
     Indication: HAEMOGLOBIN DECREASED
     Dosage: 60 MG, ONCE
     Route: 058
     Dates: start: 201509
  6. AUTRIN                             /00172901/ [Concomitant]
     Indication: BLOOD IRON INCREASED
     Dosage: UNK UNK, QD
     Route: 048
     Dates: start: 2014

REACTIONS (4)
  - Hypocalcaemia [Recovered/Resolved]
  - Respiratory failure [Recovered/Resolved]
  - Swelling [Recovered/Resolved]
  - Blood creatinine abnormal [Unknown]

NARRATIVE: CASE EVENT DATE: 201509
